FAERS Safety Report 4852892-X (Version None)
Quarter: 2005Q4

REPORT INFORMATION
  Report Type: 
  Country: None (occurrence: None)
  Receive Date: 20051212
  Receipt Date: 20051129
  Transmission Date: 20060501
  Serious: Yes (Other)
  Sender: FDA-Public Use
  Company Number: 2005163705

PATIENT
  Age: 26 Year
  Sex: Female

DRUGS (2)
  1. ZOLOFT [Suspect]
     Indication: DEPRESSION
     Dosage: 50 MG (50 MG, 1 IN 1 D), ORAL
     Route: 048
     Dates: start: 20050811, end: 20050919
  2. PIMOZIDE (PIMOZIDE) [Suspect]
     Indication: DEPRESSION
     Dosage: 0.5 MG (0.5 MG, IN 1 IN D), ORAL
     Route: 048
     Dates: start: 20050811, end: 20051013

REACTIONS (12)
  - ACCOMMODATION DISORDER [None]
  - ASTHENIA [None]
  - DIARRHOEA [None]
  - EUPHORIC MOOD [None]
  - HAEMATOMA [None]
  - HALLUCINATION [None]
  - HYPERSOMNIA [None]
  - HYPNAGOGIC HALLUCINATION [None]
  - HYPNOPOMPIC HALLUCINATION [None]
  - INCREASED APPETITE [None]
  - INSOMNIA [None]
  - TREMOR [None]
